FAERS Safety Report 8133205-7 (Version None)
Quarter: 2012Q1

REPORT INFORMATION
  Report Type: 
  Country: None (occurrence: None)
  Receive Date: 20120213
  Receipt Date: 20120208
  Transmission Date: 20120608
  Serious: Yes (Other)
  Sender: FDA-Public Use
  Company Number: PHHY2012AR011327

PATIENT
  Sex: Female

DRUGS (1)
  1. DIOVAN [Suspect]
     Indication: HYPERTENSION
     Dosage: 160 MG, DAILY
     Dates: start: 20060101

REACTIONS (6)
  - DIABETES MELLITUS [None]
  - BLOOD PRESSURE INCREASED [None]
  - NEURITIS [None]
  - MUSCLE SPASMS [None]
  - PAIN IN EXTREMITY [None]
  - OEDEMA PERIPHERAL [None]
